FAERS Safety Report 10026905 (Version 1)
Quarter: 2014Q1

REPORT INFORMATION
  Report Type: Spontaneous
  Country: FI (occurrence: FI)
  Receive Date: 20140321
  Receipt Date: 20140321
  Transmission Date: 20141002
  Serious: Yes (Hospitalization)
  Sender: FDA-Public Use
  Company Number: FI-BAYER-2014-042607

PATIENT
  Age: 18 Year
  Sex: Female

DRUGS (1)
  1. YAZ [Suspect]
     Indication: CONTRACEPTION
     Dosage: UNK
     Route: 048

REACTIONS (5)
  - Pregnancy on oral contraceptive [Recovered/Resolved]
  - Drug ineffective [None]
  - Abortion spontaneous incomplete [None]
  - Pain [None]
  - Haemorrhage in pregnancy [None]
